FAERS Safety Report 9879942 (Version 1)
Quarter: 2014Q1

REPORT INFORMATION
  Report Type: Spontaneous
  Country: JP (occurrence: JP)
  Receive Date: 20140207
  Receipt Date: 20140207
  Transmission Date: 20141002
  Serious: Yes (Other)
  Sender: FDA-Public Use
  Company Number: JP-ROCHE-1344733

PATIENT
  Sex: Male

DRUGS (1)
  1. ANEXATE [Suspect]
     Indication: PRODUCT USED FOR UNKNOWN INDICATION
     Route: 065
     Dates: start: 20140127, end: 20140127

REACTIONS (2)
  - Shock [Recovered/Resolved]
  - Headache [Unknown]
